FAERS Safety Report 6851058-1 (Version None)
Quarter: 2010Q3

REPORT INFORMATION
  Report Type: 
  Country: None (occurrence: None)
  Receive Date: 20100716
  Receipt Date: 20071030
  Transmission Date: 20110219
  Serious: No
  Sender: FDA-Public Use
  Company Number: US-PFIZER INC-2007091206

PATIENT
  Sex: Female
  Weight: 65.8 kg

DRUGS (5)
  1. CHANTIX [Suspect]
     Indication: SMOKING CESSATION THERAPY
     Dates: start: 20071017
  2. PLAQUENIL [Concomitant]
     Indication: RHEUMATOID ARTHRITIS
  3. AVAPRO [Concomitant]
     Indication: HYPERTENSION
  4. FUROSEMIDE [Concomitant]
  5. GLIPIZIDE [Concomitant]
     Indication: DIABETES MELLITUS

REACTIONS (3)
  - NAUSEA [None]
  - PRODUCTIVE COUGH [None]
  - VOMITING [None]
